FAERS Safety Report 9272033 (Version 1)
Quarter: 2013Q2

REPORT INFORMATION
  Report Type: Spontaneous
  Country: US (occurrence: US)
  Receive Date: 20130506
  Receipt Date: 20130506
  Transmission Date: 20140414
  Serious: Yes (Hospitalization, Other)
  Sender: FDA-Public Use
  Company Number: US-GILEAD-2013-0074439

PATIENT
  Age: 22 Year
  Sex: Male

DRUGS (2)
  1. STRIBILD [Suspect]
     Indication: HIV INFECTION
     Dosage: UNK
     Dates: start: 20130306
  2. BACTRIM [Suspect]
     Indication: HIV INFECTION
     Dosage: UNK
     Dates: start: 20130306

REACTIONS (13)
  - Eosinophilia [Unknown]
  - Rash [Recovering/Resolving]
  - Transaminases increased [Unknown]
  - Swelling face [Unknown]
  - Malaise [Unknown]
  - Lymphadenopathy [Unknown]
  - Pyrexia [Not Recovered/Not Resolved]
  - Nausea [Unknown]
  - Vomiting [Unknown]
  - Diarrhoea [Recovered/Resolved]
  - Asthenia [Not Recovered/Not Resolved]
  - Dyspnoea [Recovering/Resolving]
  - Pruritus [Unknown]
